FAERS Safety Report 5282311-3 (Version None)
Quarter: 2007Q1

REPORT INFORMATION
  Report Type: 
  Country: None (occurrence: None)
  Receive Date: 20070331
  Receipt Date: 20070318
  Transmission Date: 20070707
  Serious: Yes (Other)
  Sender: FDA-Public Use
  Company Number: NL-PFIZER INC-2007024287

PATIENT
  Sex: Female

DRUGS (2)
  1. LIPITOR [Suspect]
     Route: 048
     Dates: start: 20060101, end: 20070305
  2. PREVENCOR [Suspect]
     Route: 048

REACTIONS (3)
  - ANXIETY [None]
  - BLOOD POTASSIUM DECREASED [None]
  - MUSCULAR WEAKNESS [None]
